FAERS Safety Report 8368845-3 (Version None)
Quarter: 2012Q2

REPORT INFORMATION
  Report Type: 
  Country: None (occurrence: None)
  Receive Date: 20120518
  Receipt Date: 20120507
  Transmission Date: 20120825
  Serious: Yes (Hospitalization)
  Sender: FDA-Public Use
  Company Number: BR-BRISTOL-MYERS SQUIBB COMPANY-16405326

PATIENT
  Age: 62 Year
  Sex: Male

DRUGS (1)
  1. ERBITUX [Suspect]
     Indication: COLORECTAL CANCER METASTATIC
     Dosage: 12DEC11-11JAN12:30DAYS 3 INF,11JAN12 REINTRODUCED:MAR2012-ONG
     Route: 042
     Dates: start: 20111130

REACTIONS (4)
  - DIABETIC HYPERGLYCAEMIC COMA [None]
  - ACNE [None]
  - HYPERAESTHESIA [None]
  - SKIN INFECTION [None]
